FAERS Safety Report 9240681 (Version 1)
Quarter: 2013Q2

REPORT INFORMATION
  Report Type: Spontaneous
  Country: US (occurrence: US)
  Receive Date: 20130418
  Receipt Date: 20130418
  Transmission Date: 20140414
  Serious: Yes (Congenital Anomaly)
  Sender: FDA-Public Use
  Company Number: US-FRI-1000044389

PATIENT
  Sex: 0

DRUGS (1)
  1. LEXAPRO [Suspect]
     Route: 064

REACTIONS (2)
  - Oesophageal atresia [Unknown]
  - Congenital anomaly [Unknown]
